FAERS Safety Report 7598592-7 (Version None)
Quarter: 2011Q3

REPORT INFORMATION
  Report Type: 
  Country: None (occurrence: None)
  Receive Date: 20110710
  Receipt Date: 20110628
  Transmission Date: 20111222
  Serious: Yes (Other)
  Sender: FDA-Public Use
  Company Number: US-AMGEN-USASP2011033123

PATIENT
  Sex: Female

DRUGS (5)
  1. ALDARA [Concomitant]
  2. SYNTHROID [Concomitant]
  3. XGEVA [Suspect]
     Indication: OSTEOPOROSIS POSTMENOPAUSAL
     Route: 042
     Dates: start: 20110628
  4. ASPIRIN [Concomitant]
  5. CALCIUM WITH VITAMIN D             /00944201/ [Concomitant]

REACTIONS (2)
  - INCORRECT ROUTE OF DRUG ADMINISTRATION [None]
  - WRONG DRUG ADMINISTERED [None]
